FAERS Safety Report 8393090-5 (Version None)
Quarter: 2012Q2

REPORT INFORMATION
  Report Type: 
  Country: None (occurrence: None)
  Receive Date: 20120529
  Receipt Date: 20120411
  Transmission Date: 20120825
  Serious: No
  Sender: FDA-Public Use
  Company Number: US-ABBOTT-12P-163-0925019-00

PATIENT
  Sex: Male
  Weight: 122.58 kg

DRUGS (7)
  1. ALLOPURINOL [Concomitant]
     Indication: GOUT
  2. ANDROGEL [Suspect]
     Indication: BLOOD TESTOSTERONE DECREASED
     Dosage: 1 PUMP PER DAY
     Dates: start: 20120331, end: 20120409
  3. VASOTEC [Concomitant]
     Indication: HYPERTENSION
  4. LOPRESSOR [Concomitant]
     Indication: HYPERTENSION
  5. RELAFEN [Concomitant]
     Indication: ARTHRITIS
  6. ASPIRIN [Concomitant]
     Indication: PRODUCT USED FOR UNKNOWN INDICATION
  7. NEURONTIN [Concomitant]
     Indication: NEUROPATHY PERIPHERAL

REACTIONS (1)
  - OEDEMA PERIPHERAL [None]
